FAERS Safety Report 5485099-6 (Version None)
Quarter: 2007Q4

REPORT INFORMATION
  Report Type: 
  Country: None (occurrence: None)
  Receive Date: 20071009
  Receipt Date: 20071009
  Transmission Date: 20080405
  Serious: Yes (Other)
  Sender: FDA-Public Use
  Company Number: None

PATIENT
  Sex: Female
  Weight: 51.7101 kg

DRUGS (1)
  1. DICLOFENAC SODIUM [Suspect]
     Indication: PERIARTHRITIS
     Dosage: 75MG 2X/DAY ORAL
     Route: 048
     Dates: start: 20070808

REACTIONS (11)
  - AGITATION [None]
  - DYSGEUSIA [None]
  - DYSPHAGIA [None]
  - FAECES DISCOLOURED [None]
  - FEELING JITTERY [None]
  - HYPERSENSITIVITY [None]
  - NAUSEA [None]
  - PARAESTHESIA [None]
  - SKIN ODOUR ABNORMAL [None]
  - VOMITING [None]
  - WEIGHT DECREASED [None]
